FAERS Safety Report 21497178 (Version 1)
Quarter: 2022Q4

REPORT INFORMATION
  Report Type: Spontaneous
  Country: US (occurrence: US)
  Receive Date: 20221023
  Receipt Date: 20221023
  Transmission Date: 20230113
  Serious: No
  Sender: FDA-Public Use
  Company Number: US-BoehringerIngelheim-2022-BI-198787

PATIENT
  Age: 60 Year
  Sex: Male

DRUGS (2)
  1. JARDIANCE [Suspect]
     Active Substance: EMPAGLIFLOZIN
     Indication: Type 2 diabetes mellitus
     Dates: start: 202202, end: 202202
  2. METFORMIN [Suspect]
     Active Substance: METFORMIN HYDROCHLORIDE
     Indication: Product used for unknown indication

REACTIONS (2)
  - Blood glucose increased [Unknown]
  - Insomnia [Unknown]

NARRATIVE: CASE EVENT DATE: 20221001
